FAERS Safety Report 8889068 (Version 5)
Quarter: 2013Q2

REPORT INFORMATION
  Report Type: Spontaneous
  Country: US (occurrence: US)
  Receive Date: 20121106
  Receipt Date: 20130604
  Transmission Date: 20140414
  Serious: Yes (Death, Hospitalization, Other)
  Sender: FDA-Public Use
  Company Number: US-B.I. PHARMACEUTICALS,INC./RIDGEFIELD-2012-BP-27223BP

PATIENT
  Age: 78 Year
  Sex: Female
  Weight: 48.99 kg

DRUGS (18)
  1. PRADAXA [Suspect]
     Indication: ATRIAL FIBRILLATION
     Dosage: 300 MG
     Route: 048
     Dates: start: 20120228, end: 20120808
  2. PRADAXA [Suspect]
  3. PRADAXA [Suspect]
     Dosage: 100 MG
     Route: 048
  4. PROMACTA [Suspect]
     Indication: IDIOPATHIC THROMBOCYTOPENIC PURPURA
     Dosage: 50 MG
     Route: 048
     Dates: start: 20120214
  5. FORTEO [Concomitant]
     Indication: OSTEOPOROSIS
     Route: 058
     Dates: start: 20120201
  6. SYNTHROID [Concomitant]
     Indication: HYPOTHYROIDISM
     Dosage: 25 MCG
     Route: 048
     Dates: start: 20071203
  7. VOLTAREN 1% [Concomitant]
     Route: 061
     Dates: start: 20111115
  8. FLORAJEN3 [Concomitant]
     Route: 048
     Dates: start: 20110214
  9. DIPHENHYDRAMINE HCL [Concomitant]
     Indication: INSOMNIA
     Route: 048
     Dates: start: 20101006
  10. CALTRATE [Concomitant]
     Dosage: 3000 MG
     Route: 048
     Dates: start: 20101006
  11. TOPROL XL [Concomitant]
     Dosage: 6.25 MG
     Route: 048
     Dates: start: 20101006
  12. ATIVAN [Concomitant]
     Indication: ANXIETY
     Route: 048
     Dates: start: 20100907
  13. PROVENTIL HFA [Concomitant]
     Route: 048
     Dates: start: 20100903
  14. ACETAMINOPHEN-CODEINE [Concomitant]
     Indication: COUGH
     Route: 048
     Dates: start: 20120709
  15. ULTRAM [Concomitant]
     Indication: ANXIETY
     Route: 048
     Dates: start: 20120731
  16. TYLENOL/CODEINE #3 [Concomitant]
     Indication: PAIN
     Route: 048
     Dates: start: 20120731
  17. LEVAQUIN [Concomitant]
  18. ZITHROMAX [Concomitant]

REACTIONS (7)
  - Death [Fatal]
  - Haemorrhage intracranial [Recovered/Resolved]
  - Confusional state [Unknown]
  - Nausea [Unknown]
  - Vomiting [Unknown]
  - Oesophageal carcinoma [Unknown]
  - Cerebral haematoma [Unknown]
